FAERS Safety Report 19840685 (Version 7)
Quarter: 2022Q1

REPORT INFORMATION
  Report Type: Report from Study
  Country: DE (occurrence: DE)
  Receive Date: 20210916
  Receipt Date: 20220222
  Transmission Date: 20220423
  Serious: Yes (Hospitalization)
  Sender: FDA-Public Use
  Company Number: NVSC2021DE207816

PATIENT
  Age: 76 Year
  Sex: Female
  Weight: 50 kg

DRUGS (3)
  1. RIBOCICLIB [Suspect]
     Active Substance: RIBOCICLIB
     Indication: Breast cancer
     Dosage: 600 MG, QD
     Route: 048
     Dates: start: 20210715, end: 20210906
  2. LOSARTAN POTASSIUM [Concomitant]
     Active Substance: LOSARTAN POTASSIUM
     Indication: Arrhythmia
     Dosage: 8 MG, QD
     Route: 048
     Dates: start: 20170502
  3. FUROSEMIDE [Concomitant]
     Active Substance: FUROSEMIDE
     Indication: Hypertension
     Dosage: 5 MG, QD
     Route: 048
     Dates: start: 20170502

REACTIONS (4)
  - Infection [Recovered/Resolved]
  - Atypical pneumonia [Recovered/Resolved]
  - Mitral valve incompetence [Recovered/Resolved with Sequelae]
  - Hypertensive crisis [Recovered/Resolved]

NARRATIVE: CASE EVENT DATE: 20210906
